FAERS Safety Report 14455542 (Version 1)
Quarter: 2018Q1

REPORT INFORMATION
  Report Type: Spontaneous
  Country: US (occurrence: US)
  Receive Date: 20180129
  Receipt Date: 20180129
  Transmission Date: 20180509
  Serious: Yes (Hospitalization, Other)
  Sender: FDA-Public Use
  Company Number: US-DENTSPLY-2018SCDP000004

PATIENT
  Age: 56 Year
  Sex: Female

DRUGS (1)
  1. BENZOCAINE. [Suspect]
     Active Substance: BENZOCAINE
     Indication: OROPHARYNGEAL PAIN
     Dosage: USE WITH CANNISTER AT BEDSIDE

REACTIONS (2)
  - Respiratory failure [Recovering/Resolving]
  - Methaemoglobinaemia [Recovering/Resolving]
